FAERS Safety Report 9870445 (Version 1)
Quarter: 2014Q1

REPORT INFORMATION
  Report Type: Spontaneous
  Country: US (occurrence: None)
  Receive Date: 20140203
  Receipt Date: 20140203
  Transmission Date: 20141002
  Serious: Yes (Hospitalization)
  Sender: FDA-Public Use
  Company Number: 2014AP000948

PATIENT
  Sex: Female

DRUGS (1)
  1. FENTANYL [Suspect]
     Dosage: 100 UG;  ; TDER
     Route: 062

REACTIONS (3)
  - Drug ineffective [None]
  - Product adhesion issue [None]
  - Excoriation [None]
